FAERS Safety Report 5994460-2 (Version None)
Quarter: 2008Q4

REPORT INFORMATION
  Report Type: 
  Country: None (occurrence: None)
  Receive Date: 20081212
  Receipt Date: 20080825
  Transmission Date: 20090506
  Serious: No
  Sender: FDA-Public Use
  Company Number: US-AMGEN-KDL303953

PATIENT
  Sex: Female

DRUGS (3)
  1. ENBREL [Suspect]
     Indication: RHEUMATOID ARTHRITIS
     Route: 058
     Dates: start: 20021101
  2. PRILOSEC [Concomitant]
  3. UNSPECIFIED ANTI-INFLAMMATORY AGENT [Concomitant]

REACTIONS (2)
  - ABDOMINAL DISCOMFORT [None]
  - IRON DEFICIENCY ANAEMIA [None]
